FAERS Safety Report 7073576-6 (Version None)
Quarter: 2010Q4

REPORT INFORMATION
  Report Type: 
  Country: None (occurrence: None)
  Receive Date: 20101029
  Receipt Date: 20100820
  Transmission Date: 20110411
  Serious: No
  Sender: FDA-Public Use
  Company Number: A0869730A

PATIENT
  Age: 45 Year
  Sex: Female

DRUGS (4)
  1. ADVAIR DISKUS 100/50 [Suspect]
     Indication: ASTHMA
     Dosage: 1PUFF TWICE PER DAY
     Route: 055
     Dates: start: 20010101
  2. RESCUE REMEDY [Concomitant]
  3. LOESTRIN 1.5/30 [Concomitant]
  4. WELLBUTRIN [Concomitant]

REACTIONS (2)
  - NON-CARDIAC CHEST PAIN [None]
  - PRODUCT QUALITY ISSUE [None]
